FAERS Safety Report 21151793 (Version 3)
Quarter: 2022Q4

REPORT INFORMATION
  Report Type: Report from Study
  Country: US (occurrence: US)
  Receive Date: 20220730
  Receipt Date: 20221026
  Transmission Date: 20230113
  Serious: Yes (Other)
  Sender: FDA-Public Use
  Company Number: US-NOVARTISPH-NVSC2022US172046

PATIENT
  Age: 65 Year
  Sex: Male

DRUGS (1)
  1. ENTRESTO [Suspect]
     Active Substance: SACUBITRIL\VALSARTAN
     Indication: Product used for unknown indication
     Dosage: 1 DOSAGE FORM, BID (24/26 MG)
     Route: 048

REACTIONS (5)
  - Loss of consciousness [Unknown]
  - Bendopnoea [Unknown]
  - Head injury [Unknown]
  - Headache [Unknown]
  - Chest pain [Unknown]

NARRATIVE: CASE EVENT DATE: 20220726
